FAERS Safety Report 6170253-0 (Version None)
Quarter: 2009Q2

REPORT INFORMATION
  Report Type: 
  Country: None (occurrence: None)
  Receive Date: 20090427
  Receipt Date: 20090427
  Transmission Date: 20091009
  Serious: Yes (Life-Threatening, Hospitalization)
  Sender: FDA-Public Use
  Company Number: None

PATIENT
  Sex: Female
  Weight: 58.0604 kg

DRUGS (2)
  1. YAZ [Suspect]
     Indication: OVARIAN DISORDER
     Dosage: ONE PILL DAILY PO
     Route: 048
     Dates: start: 20090220, end: 20090314
  2. YAZ [Suspect]
     Indication: PELVIC PAIN
     Dosage: ONE PILL DAILY PO
     Route: 048
     Dates: start: 20090220, end: 20090314

REACTIONS (1)
  - PULMONARY EMBOLISM [None]
